FAERS Safety Report 6914295-3 (Version None)
Quarter: 2010Q3

REPORT INFORMATION
  Report Type: 
  Country: None (occurrence: None)
  Receive Date: 20100809
  Receipt Date: 20100803
  Transmission Date: 20110219
  Serious: Yes (Death, Hospitalization)
  Sender: FDA-Public Use
  Company Number: B0668186A

PATIENT
  Age: 85 Year
  Sex: Female

DRUGS (3)
  1. LAMICTAL [Suspect]
     Indication: CONVULSION
     Dosage: 25MG PER DAY
     Route: 048
     Dates: start: 20100525, end: 20100710
  2. AMOXICILLIN [Suspect]
     Indication: PARONYCHIA
     Dosage: 3G PER DAY
     Route: 048
     Dates: start: 20100624, end: 20100709
  3. FUCIDINE CAP [Suspect]
     Indication: PARONYCHIA
     Route: 061

REACTIONS (15)
  - ANURIA [None]
  - APHTHOUS STOMATITIS [None]
  - BLOOD CULTURE POSITIVE [None]
  - CHEILITIS [None]
  - CONJUNCTIVITIS [None]
  - GENERAL PHYSICAL HEALTH DETERIORATION [None]
  - HYPOTENSION [None]
  - INTESTINAL OBSTRUCTION [None]
  - OEDEMA PERIPHERAL [None]
  - PYREXIA [None]
  - RASH ERYTHEMATOUS [None]
  - RENAL IMPAIRMENT [None]
  - SKIN EROSION [None]
  - SKIN EXFOLIATION [None]
  - STEVENS-JOHNSON SYNDROME [None]
